FAERS Safety Report 10785738 (Version 2)
Quarter: 2015Q2

REPORT INFORMATION
  Report Type: Spontaneous
  Country: US (occurrence: None)
  Receive Date: 20150209
  Receipt Date: 20150518
  Transmission Date: 20150821
  Serious: Yes (Other)
  Sender: FDA-Public Use
  Company Number: ADR-2014-01357

PATIENT
  Age: 57 Year
  Sex: Male

DRUGS (2)
  1. BACLOFEN INTRATHECAL 500 MCG/ML [Suspect]
     Active Substance: BACLOFEN
     Indication: PAIN
  2. MORPHINE [Suspect]
     Active Substance: MORPHINE

REACTIONS (26)
  - Device breakage [None]
  - Malaise [None]
  - Back pain [None]
  - Anxiety [None]
  - Peripheral swelling [None]
  - Acute kidney injury [None]
  - Joint swelling [None]
  - Mental status changes [None]
  - Device failure [None]
  - Infrequent bowel movements [None]
  - Urinary retention [None]
  - Feeling cold [None]
  - Cellulitis [None]
  - Concussion [None]
  - Sunburn [None]
  - Hyperhidrosis [None]
  - Device damage [None]
  - Disturbance in attention [None]
  - Nausea [None]
  - Confusional state [None]
  - Head injury [None]
  - Muscular weakness [None]
  - Diarrhoea [None]
  - Post procedural complication [None]
  - Fall [None]
  - Cardiac failure congestive [None]

NARRATIVE: CASE EVENT DATE: 20140726
